FAERS Safety Report 21285957 (Version 1)
Quarter: 2022Q3

REPORT INFORMATION
  Report Type: Spontaneous
  Country: US (occurrence: US)
  Receive Date: 20220902
  Receipt Date: 20220902
  Transmission Date: 20221027
  Serious: Yes (Other)
  Sender: FDA-Public Use
  Company Number: US-MYLANLABS-2022M1088488

PATIENT
  Age: 27 Year
  Sex: Male

DRUGS (1)
  1. SEMGLEE (INSULIN GLARGINE-YFGN) [Suspect]
     Active Substance: INSULIN GLARGINE-YFGN
     Indication: Type 2 diabetes mellitus
     Dosage: 60 INTERNATIONAL UNIT, HS (60 ONCE DAILY AT NIGHT)
     Route: 058

REACTIONS (2)
  - Lipodystrophy acquired [Unknown]
  - Device breakage [Unknown]

NARRATIVE: CASE EVENT DATE: 20220819
